FAERS Safety Report 10196399 (Version 1)
Quarter: 2014Q2

REPORT INFORMATION
  Report Type: Spontaneous
  Country: DE (occurrence: DE)
  Receive Date: 20140527
  Receipt Date: 20140527
  Transmission Date: 20141212
  Serious: Yes (Other)
  Sender: FDA-Public Use
  Company Number: DE-JNJFOC-20140513113

PATIENT
  Age: 41 Year
  Sex: Female

DRUGS (3)
  1. XEPLION [Suspect]
     Indication: PRODUCT USED FOR UNKNOWN INDICATION
     Route: 030
  2. XEPLION [Suspect]
     Indication: PRODUCT USED FOR UNKNOWN INDICATION
     Route: 030
  3. SEROQUEL [Concomitant]
     Route: 065

REACTIONS (4)
  - Depressed mood [Unknown]
  - Restlessness [Unknown]
  - Flat affect [Unknown]
  - Impulse-control disorder [Unknown]
